FAERS Safety Report 9289342 (Version 2)
Quarter: 2013Q2

REPORT INFORMATION
  Report Type: Spontaneous
  Country: ES (occurrence: ES)
  Receive Date: 20130514
  Receipt Date: 20130520
  Transmission Date: 20140414
  Serious: Yes (Hospitalization, Other)
  Sender: FDA-Public Use
  Company Number: ES-PFIZER INC-2013143664

PATIENT
  Age: 98 Year
  Sex: Male

DRUGS (7)
  1. CARDURAN NEO [Suspect]
     Indication: HYPERTENSION
     Dosage: 2 DF, DAILY
     Dates: start: 2003, end: 20130209
  2. CARDURAN NEO [Suspect]
     Indication: BENIGN PROSTATIC HYPERPLASIA
     Dosage: 1 DF, DAILY
     Dates: start: 20130210, end: 20130402
  3. OMEPRAZOLE [Concomitant]
     Dosage: 20 MG, 2X/DAY
  4. FINASTERIDE [Concomitant]
     Indication: BENIGN PROSTATIC HYPERPLASIA
     Dosage: 1 DF, DAILY
  5. SUTRIL [Concomitant]
     Dosage: 5 MG, DAILY
     Dates: start: 201211
  6. FOLI DOCE [Concomitant]
     Dosage: UNK
  7. KILOR [Concomitant]
     Dosage: UNK

REACTIONS (3)
  - Vomiting [Recovered/Resolved]
  - Hypotension [Recovered/Resolved]
  - Urinary retention [Recovered/Resolved]
